FAERS Safety Report 5352031-5 (Version None)
Quarter: 2007Q2

REPORT INFORMATION
  Report Type: 
  Country: None (occurrence: None)
  Receive Date: 20070607
  Receipt Date: 20070607
  Transmission Date: 20071010
  Serious: No
  Sender: FDA-Public Use
  Company Number: None

PATIENT
  Sex: Female
  Weight: 90.2658 kg

DRUGS (1)
  1. WARFARIN SODIUM [Suspect]
     Indication: FACTOR V DEFICIENCY
     Dosage: 2.5 X 6 DAYS/5 MGX 1 D/ ONE TIME QD PO
     Route: 048

REACTIONS (2)
  - DRUG INEFFECTIVE [None]
  - PHARMACEUTICAL PRODUCT COMPLAINT [None]
